FAERS Safety Report 6722354-3 (Version None)
Quarter: 2010Q2

REPORT INFORMATION
  Report Type: 
  Country: None (occurrence: None)
  Receive Date: 20100512
  Receipt Date: 20100430
  Transmission Date: 20101027
  Serious: Yes (Other)
  Sender: FDA-Public Use
  Company Number: DE-ROCHE-702317

PATIENT
  Sex: Female
  Weight: 64 kg

DRUGS (4)
  1. HERCEPTIN [Suspect]
     Route: 042
     Dates: start: 20050101
  2. MIRTAZAPIN HEXAL [Concomitant]
     Dosage: 15MG DAILY
     Route: 048
     Dates: start: 20090401
  3. L-THYROXIN HENNING [Concomitant]
     Dosage: 100MG DAILY
     Route: 048
     Dates: start: 20090601
  4. VIGANTOLETTEN [Concomitant]
     Dosage: 1000 IU DAILY
     Route: 048

REACTIONS (1)
  - SKIN EXFOLIATION [None]
